FAERS Safety Report 12244132 (Version 1)
Quarter: 2016Q2

REPORT INFORMATION
  Report Type: Spontaneous
  Country: FR (occurrence: FR)
  Receive Date: 20160406
  Receipt Date: 20160406
  Transmission Date: 20160815
  Serious: Yes (Hospitalization)
  Sender: FDA-Public Use
  Company Number: PHHY2016FR043734

PATIENT
  Age: 79 Year
  Sex: Male
  Weight: 81 kg

DRUGS (4)
  1. RIFADINE [Suspect]
     Active Substance: RIFAMPIN
     Indication: BREAST ABSCESS
     Dosage: 200 MG, QD,IN THE MORNING
     Route: 048
     Dates: start: 20160222, end: 20160306
  2. RIMIFON [Concomitant]
     Active Substance: ISONIAZID
     Indication: BREAST ABSCESS
     Dosage: 300 MG, QD,IN THE MORNING
     Route: 048
     Dates: start: 20160222, end: 20160313
  3. ETHAMBUTOL [Concomitant]
     Active Substance: ETHAMBUTOL HYDROCHLORIDE
     Indication: BREAST ABSCESS
     Dosage: 1500 MG, QD,IN THE MORNING
     Route: 048
     Dates: start: 20160222
  4. RIMACTAN SANDOZ [Suspect]
     Active Substance: RIFAMPIN
     Indication: BREAST ABSCESS
     Dosage: 600 MG, QD,IN THE MORNING
     Route: 048
     Dates: start: 20160222, end: 20160306

REACTIONS (1)
  - Gastrointestinal disorder [Unknown]

NARRATIVE: CASE EVENT DATE: 201603
